FAERS Safety Report 11081916 (Version 1)
Quarter: 2015Q2

REPORT INFORMATION
  Report Type: Report from Study
  Country: BR (occurrence: BR)
  Receive Date: 20150501
  Receipt Date: 20150501
  Transmission Date: 20150821
  Serious: Yes (Death, Other)
  Sender: FDA-Public Use
  Company Number: PHHY2015BR052483

PATIENT
  Sex: Male
  Weight: 79 kg

DRUGS (2)
  1. EXELON [Suspect]
     Active Substance: RIVASTIGMINE TARTRATE
     Indication: BRAIN HYPOXIA
     Dosage: UNK
     Route: 065
     Dates: start: 2004
  2. EXELON PATCH [Suspect]
     Active Substance: RIVASTIGMINE
     Indication: CEREBRAL ISCHAEMIA
     Dosage: PATCH 10 (CM2)
     Route: 065

REACTIONS (4)
  - Nosocomial infection [Fatal]
  - Dementia Alzheimer^s type [Fatal]
  - Off label use [Unknown]
  - Respiratory failure [Fatal]
